FAERS Safety Report 10477744 (Version 2)
Quarter: 2018Q2

REPORT INFORMATION
  Report Type: Spontaneous
  Country: BR (occurrence: BR)
  Receive Date: 20140926
  Receipt Date: 20180414
  Transmission Date: 20180711
  Serious: Yes (Death, Other)
  Sender: FDA-Public Use
  Company Number: BR-ALEXION PHARMACEUTICALS INC.-A201403738

PATIENT
  Age: 67 Year
  Sex: Male

DRUGS (2)
  1. SOLIRIS [Suspect]
     Active Substance: ECULIZUMAB
     Dosage: UNK
     Route: 065
     Dates: start: 20140921
  2. SOLIRIS [Suspect]
     Active Substance: ECULIZUMAB
     Indication: HAEMOLYTIC URAEMIC SYNDROME
     Dosage: 900 MG, SINGLE
     Route: 042
     Dates: start: 20140921

REACTIONS (1)
  - Cardiopulmonary failure [Fatal]

NARRATIVE: CASE EVENT DATE: 20140923
